FAERS Safety Report 5063112-8 (Version None)
Quarter: 2006Q3

REPORT INFORMATION
  Report Type: 
  Country: None (occurrence: None)
  Receive Date: 20060727
  Receipt Date: 20060719
  Transmission Date: 20061208
  Serious: Yes (Other)
  Sender: FDA-Public Use
  Company Number: US-JNJFOC-20060704662

PATIENT
  Sex: Female
  Weight: 56.7 kg

DRUGS (6)
  1. DURAGESIC-100 [Suspect]
     Indication: PAIN
     Route: 062
  2. ZETIA [Concomitant]
     Indication: BLOOD CHOLESTEROL INCREASED
     Route: 048
  3. LOTENSIN [Concomitant]
     Indication: HYPERTENSION
     Route: 048
  4. HYDROCODONE [Concomitant]
     Indication: PAIN
     Dosage: 1/2 OF 5 MG TABLET, 3 TIMES DAILY
     Route: 048
  5. CYMBALTA [Concomitant]
     Indication: PAIN
     Route: 048
  6. PRILOSEC [Concomitant]
     Route: 048

REACTIONS (8)
  - BLOOD CHOLESTEROL INCREASED [None]
  - COLITIS [None]
  - GASTROINTESTINAL MOTILITY DISORDER [None]
  - HYPERSOMNIA [None]
  - PARKINSON'S DISEASE [None]
  - PARKINSONISM [None]
  - PHARMACEUTICAL PRODUCT COMPLAINT [None]
  - THERAPEUTIC RESPONSE DECREASED [None]
